FAERS Safety Report 9090029 (Version 1)
Quarter: 2013Q1

REPORT INFORMATION
  Report Type: Report from Study
  Country: US (occurrence: US)
  Receive Date: 20130201
  Receipt Date: 20130201
  Transmission Date: 20140127
  Serious: No
  Sender: FDA-Public Use
  Company Number: US-ABBOTT-12P-163-1019133-00

PATIENT
  Age: 53 Year
  Sex: Male

DRUGS (14)
  1. HUMIRA [Suspect]
     Indication: RHEUMATOID ARTHRITIS
     Dates: start: 20121109
  2. HUMIRA [Suspect]
     Dates: start: 20121116
  3. METFORMIN [Concomitant]
     Indication: DIABETES MELLITUS
  4. AMLODIPINE [Concomitant]
     Indication: BLOOD PRESSURE
  5. TRICOR [Concomitant]
     Indication: BLOOD TRIGLYCERIDES
  6. BENICAR [Concomitant]
     Indication: BLOOD PRESSURE
     Dosage: EVERY DAY
  7. BYSTOLIC [Concomitant]
     Indication: BLOOD PRESSURE
  8. TERAZOSIN [Concomitant]
     Indication: BLOOD PRESSURE
  9. LIPITOR [Concomitant]
     Indication: BLOOD CHOLESTEROL
  10. BAYER ASPIRIN [Concomitant]
     Indication: PRODUCT USED FOR UNKNOWN INDICATION
  11. METHOTREXATE [Concomitant]
     Indication: PRODUCT USED FOR UNKNOWN INDICATION
     Dosage: WEEKLY
  12. MULTIVITAMIN [Concomitant]
     Indication: PRODUCT USED FOR UNKNOWN INDICATION
     Dosage: EVERY DAY
  13. MAGNESIUM [Concomitant]
     Indication: PRODUCT USED FOR UNKNOWN INDICATION
     Dosage: EVERY DAY
  14. CO Q-10 [Concomitant]
     Indication: PRODUCT USED FOR UNKNOWN INDICATION

REACTIONS (3)
  - Drug dose omission [Not Recovered/Not Resolved]
  - Dizziness [Not Recovered/Not Resolved]
  - Dizziness [Not Recovered/Not Resolved]
